FAERS Safety Report 23955907 (Version 1)
Quarter: 2024Q2

REPORT INFORMATION
  Report Type: Spontaneous
  Country: US (occurrence: None)
  Receive Date: 20240607
  Receipt Date: 20240607
  Transmission Date: 20240715
  Serious: Yes (Other)
  Sender: FDA-Public Use
  Company Number: None

PATIENT
  Age: 58 Year
  Sex: Female

DRUGS (1)
  1. ENBREL [Suspect]
     Active Substance: BENZYL ALCOHOL\ETANERCEPT
     Indication: Rheumatoid arthritis
     Dosage: FREQUENCY : WEEKLY;?

REACTIONS (17)
  - Headache [None]
  - Bedridden [None]
  - Chest pain [None]
  - Asthenia [None]
  - Fall [None]
  - Vision blurred [None]
  - Impaired healing [None]
  - Disease complication [None]
  - Blindness [None]
  - Balance disorder [None]
  - Hypoaesthesia [None]
  - Paraesthesia [None]
  - Immunosuppression [None]
  - Illness [None]
  - Pain [None]
  - Myalgia [None]
  - Pain in extremity [None]
